FAERS Safety Report 6570649-9 (Version None)
Quarter: 2010Q1

REPORT INFORMATION
  Report Type: 
  Country: None (occurrence: None)
  Receive Date: 20100204
  Receipt Date: 20100123
  Transmission Date: 20100710
  Serious: Yes (Hospitalization)
  Sender: FDA-Public Use
  Company Number: US-PFIZER INC-2010009327

PATIENT
  Sex: Male
  Weight: 116 kg

DRUGS (9)
  1. MARAVIROC [Suspect]
     Dosage: 150 MG, 2X/DAY
     Route: 048
     Dates: start: 20090204
  2. DARUNAVIR [Concomitant]
     Dosage: 600 MG, 2X/DAY
     Dates: start: 20090204
  3. ETRAVIRINE [Concomitant]
     Dosage: 200 MG, 2X/DAY
     Dates: start: 20090204
  4. RITONAVIR [Concomitant]
     Dosage: 100 MG, 2X/DAY
     Dates: start: 20090204
  5. ASPIRIN [Concomitant]
     Indication: PROPHYLAXIS
     Dosage: 81 MG, UNK
     Route: 048
  6. LOPRESSOR [Concomitant]
     Indication: HYPERTENSION
     Dosage: 12.5 UNK, UNK
     Route: 048
  7. CLOPIDOGREL [Concomitant]
     Indication: THROMBOSIS PROPHYLAXIS
     Dosage: 75 MG, UNK
     Route: 048
  8. PRAVASTATIN [Concomitant]
     Indication: HYPERLIPIDAEMIA
     Dosage: 40 MG, UNK
     Route: 048
  9. LISINOPRIL [Concomitant]
     Indication: HYPERTENSION
     Dosage: 2.5 MG, UNK
     Route: 048

REACTIONS (1)
  - MYOCARDIAL INFARCTION [None]
